FAERS Safety Report 8477489-4 (Version None)
Quarter: 2012Q2

REPORT INFORMATION
  Report Type: 
  Country: None (occurrence: None)
  Receive Date: 20120629
  Receipt Date: 20120627
  Transmission Date: 20120825
  Serious: Yes (Death, Hospitalization)
  Sender: FDA-Public Use
  Company Number: PHHY2012CA032565

PATIENT
  Sex: Female

DRUGS (10)
  1. ZOLEDRONOC ACID [Suspect]
     Indication: OSTEOPOROSIS POSTMENOPAUSAL
     Dosage: UNK UKN, UNK
     Route: 042
     Dates: start: 20100708
  2. RASILEZ [Concomitant]
     Dosage: 150 UKN, QD
  3. SYNTHROID [Concomitant]
     Dosage: 0.75 UKN, UNK
  4. METOPROLOL SUCCINATE [Concomitant]
     Dosage: 75 UKN, BID
  5. PREDNISONE [Concomitant]
     Dosage: 5 UKN, QD
  6. NITRODUR II [Concomitant]
     Dosage: 0.6 UKN, UNK
  7. ATACAND [Concomitant]
     Dosage: 32 UKN, UNK
  8. ASPIRIN [Concomitant]
     Dosage: 80 UKN, QD
  9. ZOLEDRONOC ACID [Suspect]
     Dosage: UNK UKN, UNK
     Route: 042
     Dates: start: 20110714
  10. VITAMIN D [Concomitant]
     Dosage: 1000 UKN, UNK

REACTIONS (3)
  - DEATH [None]
  - MUSCULOSKELETAL CHEST PAIN [None]
  - ACUTE MYOCARDIAL INFARCTION [None]
